FAERS Safety Report 11997768 (Version 1)
Quarter: 2015Q4

REPORT INFORMATION
  Report Type: Spontaneous
  Country: US (occurrence: None)
  Receive Date: 20151203
  Receipt Date: 20151203
  Transmission Date: 20160305
  Serious: No
  Sender: FDA-Public Use
  Company Number: M-622088

PATIENT
  Sex: Female

DRUGS (1)
  1. COVARYX HS [Suspect]
     Active Substance: ESTROGENS, ESTERIFIED\METHYLTESTOSTERONE
     Dosage: (0.625ESTERIFIED ESTROGENS/1.25METHYLTESTOSTERONE) 1-2 TABLETS DAILY, ORAL
     Route: 048

REACTIONS (6)
  - Anorgasmia [None]
  - Depression [None]
  - Abdominal discomfort [None]
  - Pain in extremity [None]
  - Product substitution issue [None]
  - Loss of libido [None]

NARRATIVE: CASE EVENT DATE: 20151102
